FAERS Safety Report 24967203 (Version 1)
Quarter: 2025Q1

REPORT INFORMATION
  Report Type: Spontaneous
  Country: JP (occurrence: JP)
  Receive Date: 20250213
  Receipt Date: 20250213
  Transmission Date: 20250408
  Serious: Yes (Other)
  Sender: MERCK SHARP & DOHME LLC
  Company Number: JP-MSD-M2024-13902

PATIENT
  Age: 76 Year
  Sex: Female

DRUGS (3)
  1. KEYTRUDA [Suspect]
     Active Substance: PEMBROLIZUMAB
     Indication: Oesophageal carcinoma
     Dosage: DOSE DESCRIPTION : 200 MILLIGRAM, Q3W?DAILY DOSE : 9.4 MILLIGRAM?REGIMEN DOSE : 2000  MILLIGRAM
     Route: 041
     Dates: start: 20220420, end: 20221106
  2. FLUOROURACIL [Concomitant]
     Active Substance: FLUOROURACIL
     Indication: Oesophageal carcinoma
     Dosage: DOSE DESCRIPTION : 800 MILLIGRAM/SQ. METER, QD  (DOSED DAILY FOR 5 CONSECUTIVE DAYS)?DAILY DOSE :...
     Route: 041
     Dates: start: 20220420, end: 20221106
  3. CISPLATIN [Concomitant]
     Active Substance: CISPLATIN
     Indication: Oesophageal carcinoma
     Dosage: DOSE DESCRIPTION : 80 MILLIGRAM/SQ. METER, Q3W?DAILY DOSE : 3.76 MILLIGRAM/SQ. METER?REGIMEN DOSE...
     Route: 041
     Dates: start: 20220420, end: 202209

REACTIONS (2)
  - Malignant neoplasm progression [Unknown]
  - Hepatic enzyme abnormal [Recovered/Resolved]

NARRATIVE: CASE EVENT DATE: 20221121
